FAERS Safety Report 9822361 (Version 3)
Quarter: 2014Q1

REPORT INFORMATION
  Report Type: Spontaneous
  Country: CH (occurrence: None)
  Receive Date: 20140115
  Receipt Date: 20140224
  Transmission Date: 20141002
  Serious: Yes (Other)
  Sender: FDA-Public Use
  Company Number: 20130758

PATIENT
  Age: 43 Year
  Sex: Female
  Weight: 60 kg

DRUGS (1)
  1. VENOFER [Suspect]
     Indication: IRON DEFICIENCY ANAEMIA
     Dosage: 100 MG IN 100 ML NS, 60 MIN INTRAVENOUS DRIP
     Route: 041
     Dates: start: 20131028, end: 20131028

REACTIONS (5)
  - Skin disorder [None]
  - Fatigue [None]
  - Hypersensitivity [None]
  - Eczema [None]
  - Laceration [None]
